FAERS Safety Report 5915186-7 (Version None)
Quarter: 2008Q4

REPORT INFORMATION
  Report Type: 
  Country: None (occurrence: None)
  Receive Date: 20081010
  Receipt Date: 20080930
  Transmission Date: 20090506
  Serious: Yes (Life-Threatening, Hospitalization, Other)
  Sender: FDA-Public Use
  Company Number: DK-BAYER-DK-2006-033269

PATIENT
  Age: 16 Year
  Sex: Female
  Weight: 48 kg

DRUGS (4)
  1. YASMIN [Suspect]
     Indication: DYSMENORRHOEA
     Route: 048
     Dates: start: 20060323, end: 20060717
  2. GESTODENE AND ETHINYL ESTRADIOL [Suspect]
     Indication: DYSMENORRHOEA
     Route: 048
     Dates: start: 20060717, end: 20061009
  3. IBUMETIN [Concomitant]
     Indication: DRUG USE FOR UNKNOWN INDICATION
  4. TODOLAC [Concomitant]
     Indication: DRUG USE FOR UNKNOWN INDICATION
     Route: 048
     Dates: start: 20061004, end: 20061011

REACTIONS (11)
  - CARDIOVASCULAR DISORDER [None]
  - DIZZINESS [None]
  - DYSPNOEA [None]
  - HEART RATE INCREASED [None]
  - HEART SOUNDS ABNORMAL [None]
  - MALAISE [None]
  - MUSCULOSKELETAL DISCOMFORT [None]
  - PLEURISY [None]
  - PULMONARY EMBOLISM [None]
  - PULMONARY FUNCTION TEST DECREASED [None]
  - RIGHT VENTRICULAR FAILURE [None]
